FAERS Safety Report 16640725 (Version 3)
Quarter: 2019Q3

REPORT INFORMATION
  Report Type: Spontaneous
  Country: US (occurrence: US)
  Receive Date: 20190729
  Receipt Date: 20190823
  Transmission Date: 20191004
  Serious: Yes (Other)
  Sender: FDA-Public Use
  Company Number: US-AUROBINDO-AUR-APL-2019-044177

PATIENT

DRUGS (1)
  1. PIPERACILLIN AND TAZOBACTAM [Suspect]
     Active Substance: PIPERACILLIN SODIUM\TAZOBACTAM SODIUM
     Indication: INFECTION
     Dosage: UNK, FOR EVERY 06 HOURS FOR 04 DAYS
     Route: 065

REACTIONS (9)
  - Peripheral swelling [Unknown]
  - Maternal exposure during pregnancy [Unknown]
  - Contusion [Unknown]
  - Ageusia [Unknown]
  - Hypersensitivity [Unknown]
  - Recalled product administered [Unknown]
  - Urticaria [Unknown]
  - Abortion spontaneous [Unknown]
  - Oropharyngeal pain [Unknown]
